FAERS Safety Report 20651036 (Version 1)
Quarter: 2022Q1

REPORT INFORMATION
  Report Type: Report from Study
  Country: US (occurrence: US)
  Receive Date: 20220329
  Receipt Date: 20220329
  Transmission Date: 20220423
  Serious: Yes (Other)
  Sender: FDA-Public Use
  Company Number: US-REGENERON PHARMACEUTICALS, INC.-2022-041764

PATIENT
  Age: 49 Year
  Sex: Female

DRUGS (1)
  1. CASIRIVIMAB\IMDEVIMAB [Suspect]
     Active Substance: CASIRIVIMAB\IMDEVIMAB
     Indication: COVID-19
     Dosage: 1200 MG, SINGLE
     Route: 042
     Dates: start: 20211222, end: 20211222

REACTIONS (6)
  - Seizure [Unknown]
  - Infusion related reaction [Unknown]
  - Fall [Unknown]
  - Head injury [Unknown]
  - Urinary incontinence [Unknown]
  - Lethargy [Unknown]

NARRATIVE: CASE EVENT DATE: 20211222
